FAERS Safety Report 26150936 (Version 1)
Quarter: 2025Q4

REPORT INFORMATION
  Report Type: Other
  Country: US (occurrence: US)
  Receive Date: 20251212
  Receipt Date: 20251212
  Transmission Date: 20260118
  Serious: Yes (Life-Threatening, Hospitalization, Other)
  Sender: ALVOGEN
  Company Number: US-ALVOGEN-2025099131

PATIENT
  Age: 33 Year
  Sex: Male

DRUGS (3)
  1. FENTANYL [Suspect]
     Active Substance: FENTANYL
     Indication: Product used for unknown indication
     Dosage: ACCIDENTAL OVERDOSE
  2. COCAINE [Suspect]
     Active Substance: COCAINE
     Indication: Product used for unknown indication
     Dosage: OVERDOSE
  3. ALCOHOL [Suspect]
     Active Substance: ALCOHOL
     Indication: Product used for unknown indication

REACTIONS (6)
  - Toxic leukoencephalopathy [Recovering/Resolving]
  - Locked-in syndrome [Recovering/Resolving]
  - Rhabdomyolysis [Recovering/Resolving]
  - Acute respiratory failure [Recovering/Resolving]
  - Toxicity to various agents [Unknown]
  - Accidental overdose [Unknown]

NARRATIVE: CASE EVENT DATE: 20230101
